FAERS Safety Report 11556754 (Version 1)
Quarter: 2015Q3

REPORT INFORMATION
  Report Type: Spontaneous
  Country: US (occurrence: US)
  Receive Date: 20150916
  Receipt Date: 20150916
  Transmission Date: 20151125
  Serious: Yes (Hospitalization)
  Sender: FDA-Public Use
  Company Number: US-ELI_LILLY_AND_COMPANY-US200806002297

PATIENT
  Age: 86 Year
  Sex: Female

DRUGS (2)
  1. FORTEO [Suspect]
     Active Substance: TERIPARATIDE
     Indication: OSTEOPOROSIS
     Dosage: UNK, UNK
     Dates: start: 200806, end: 200806
  2. ANALGESICS [Concomitant]
     Active Substance: UNSPECIFIED INGREDIENT
     Indication: PAIN

REACTIONS (3)
  - Hypoaesthesia [Unknown]
  - Dizziness [Recovered/Resolved]
  - Activities of daily living impaired [Unknown]

NARRATIVE: CASE EVENT DATE: 200806
